FAERS Safety Report 11236174 (Version 3)
Quarter: 2016Q4

REPORT INFORMATION
  Report Type: Report from Study
  Country: US (occurrence: US)
  Receive Date: 20150702
  Receipt Date: 20161101
  Transmission Date: 20170206
  Serious: Yes (Death, Hospitalization)
  Sender: FDA-Public Use
  Company Number: US-ACTELION-A-NJ2015-120071

PATIENT
  Age: 81 Year
  Sex: Female

DRUGS (1)
  1. OPSUMIT [Suspect]
     Active Substance: MACITENTAN
     Indication: PULMONARY ARTERIAL HYPERTENSION
     Dosage: 10 MG, QD
     Route: 048
     Dates: start: 20140923, end: 20161001

REACTIONS (5)
  - Dyspnoea [Unknown]
  - Death [Fatal]
  - Idiopathic pulmonary fibrosis [Unknown]
  - Heart rate irregular [Unknown]
  - Chest pain [Unknown]

NARRATIVE: CASE EVENT DATE: 20161001
